FAERS Safety Report 10542657 (Version 1)
Quarter: 2014Q4

REPORT INFORMATION
  Report Type: Spontaneous
  Country: US (occurrence: None)
  Receive Date: 20141024
  Receipt Date: 20141024
  Transmission Date: 20150529
  Serious: Yes (Other)
  Sender: FDA-Public Use
  Company Number: None

PATIENT
  Sex: Female
  Weight: 103.42 kg

DRUGS (4)
  1. ASPRON [Concomitant]
  2. BAYER [Concomitant]
     Active Substance: ASPIRIN
  3. ARMOUR THYROID [Suspect]
     Active Substance: THYROID, PORCINE\THYROID, UNSPECIFIED
     Indication: THYROID DISORDER
     Dosage: 90MM, 1 1/2 PILL A DAY, ONCE, BY MOUTH
     Route: 048
     Dates: start: 1959
  4. CHOLOR [Concomitant]

REACTIONS (3)
  - Peripheral swelling [None]
  - Rash [None]
  - Blister [None]
